FAERS Safety Report 9356053 (Version 1)
Quarter: 2013Q2

REPORT INFORMATION
  Report Type: Spontaneous
  Country: US (occurrence: US)
  Receive Date: 20130619
  Receipt Date: 20130619
  Transmission Date: 20140414
  Serious: No
  Sender: FDA-Public Use
  Company Number: US-009507513-1305USA017352

PATIENT
  Age: 5 Year
  Sex: Male

DRUGS (3)
  1. CLARITIN ORAL SOLUTION [Suspect]
     Indication: EYE SWELLING
     Dosage: UNK, UNKNOWN
     Route: 048
  2. CLARITIN ORAL SOLUTION [Suspect]
     Indication: RHINITIS
  3. CLARITIN ORAL SOLUTION [Suspect]
     Indication: SNEEZING

REACTIONS (2)
  - Condition aggravated [Recovered/Resolved]
  - Somnolence [Recovered/Resolved]
